FAERS Safety Report 5801201-8 (Version None)
Quarter: 2008Q3

REPORT INFORMATION
  Report Type: 
  Country: None (occurrence: None)
  Receive Date: 20080702
  Receipt Date: 20080617
  Transmission Date: 20090109
  Serious: Yes (Hospitalization, Other)
  Sender: FDA-Public Use
  Company Number: 2008BI013285

PATIENT
  Age: 28 Year
  Sex: Female

DRUGS (1)
  1. TYSABRI [Suspect]
     Indication: MULTIPLE SCLEROSIS
     Dosage: 300 MG; QM; IV
     Route: 042
     Dates: start: 20080211

REACTIONS (9)
  - BACTERIAL INFECTION [None]
  - CONVULSION [None]
  - GAIT DISTURBANCE [None]
  - INFLUENZA [None]
  - LOSS OF CONTROL OF LEGS [None]
  - ORAL CANDIDIASIS [None]
  - PULMONARY OEDEMA [None]
  - SENSATION OF HEAVINESS [None]
  - WEIGHT DECREASED [None]
